FAERS Safety Report 5336858-1 (Version None)
Quarter: 2007Q2

REPORT INFORMATION
  Report Type: 
  Country: None (occurrence: None)
  Receive Date: 20070524
  Receipt Date: 20070524
  Transmission Date: 20071010
  Serious: Yes (Life-Threatening, Hospitalization)
  Sender: FDA-Public Use
  Company Number: None

PATIENT
  Age: 48 Year
  Sex: Female
  Weight: 146.5118 kg

DRUGS (1)
  1. AVANDIA [Suspect]
     Indication: DIABETES MELLITUS
     Dosage: ONE 2 TIMES DAILY
     Dates: start: 20030220, end: 20030525

REACTIONS (25)
  - ABASIA [None]
  - AMNESIA [None]
  - ANGINA PECTORIS [None]
  - ARRHYTHMIA [None]
  - ASTHMA [None]
  - CARDIOVASCULAR DISORDER [None]
  - CATARACT [None]
  - CHRONIC OBSTRUCTIVE PULMONARY DISEASE [None]
  - CRYING [None]
  - DEPRESSION [None]
  - DYSPNOEA [None]
  - FACE OEDEMA [None]
  - LUNG DISORDER [None]
  - MYOCARDIAL INFARCTION [None]
  - MYOCARDIAL ISCHAEMIA [None]
  - OEDEMA [None]
  - OEDEMA DUE TO CARDIAC DISEASE [None]
  - OEDEMA PERIPHERAL [None]
  - PALPITATIONS [None]
  - PERIPHERAL COLDNESS [None]
  - PNEUMONIA [None]
  - POOR PERIPHERAL CIRCULATION [None]
  - SKIN TIGHTNESS [None]
  - VISION BLURRED [None]
  - WEIGHT INCREASED [None]
